FAERS Safety Report 7931259-1 (Version None)
Quarter: 2011Q4

REPORT INFORMATION
  Report Type: 
  Country: None (occurrence: None)
  Receive Date: 20111121
  Receipt Date: 20111110
  Transmission Date: 20120403
  Serious: Yes (Hospitalization, Other)
  Sender: FDA-Public Use
  Company Number: US-BAYER-2011-075216

PATIENT
  Sex: Female
  Weight: 72.562 kg

DRUGS (8)
  1. YAZ [Suspect]
     Indication: CONTRACEPTION
     Dosage: UNK
     Dates: start: 20070101, end: 20090101
  2. CLARITIN [Concomitant]
     Dosage: UNK
     Route: 048
     Dates: start: 20010101
  3. NAPROXEN [Concomitant]
     Dosage: UNK
     Route: 048
     Dates: start: 20080101
  4. YAZ [Suspect]
     Indication: ACNE
  5. YAZ [Suspect]
     Indication: PREMENSTRUAL SYNDROME
  6. SINGULAIR [Concomitant]
     Dosage: UNK
     Route: 048
     Dates: start: 20010101
  7. YAZ [Suspect]
  8. DIOVAN [Concomitant]
     Dosage: UNK
     Route: 048
     Dates: start: 20080101

REACTIONS (2)
  - THROMBOSIS [None]
  - GALLBLADDER INJURY [None]
